FAERS Safety Report 23630242 (Version 2)
Quarter: 2024Q1

REPORT INFORMATION
  Report Type: Report from Study
  Country: US (occurrence: US)
  Receive Date: 20240314
  Receipt Date: 20240322
  Transmission Date: 20240410
  Serious: Yes (Hospitalization, Other)
  Sender: FDA-Public Use
  Company Number: US-DECIPHERA PHARMACEUTICALS LLC-2024US000227

PATIENT
  Age: 48 Year
  Sex: Female

DRUGS (1)
  1. QINLOCK [Suspect]
     Active Substance: RIPRETINIB
     Indication: Gastrointestinal stromal tumour
     Dosage: 150 MILLIGRAM, QD
     Route: 048
     Dates: start: 20230323

REACTIONS (3)
  - Animal scratch [Unknown]
  - Transfusion [Unknown]
  - Localised infection [Unknown]
